FAERS Safety Report 7423923-8 (Version None)
Quarter: 2011Q2

REPORT INFORMATION
  Report Type: 
  Country: None (occurrence: None)
  Receive Date: 20110419
  Receipt Date: 20101214
  Transmission Date: 20111010
  Serious: Yes (Hospitalization)
  Sender: FDA-Public Use
  Company Number: A0901046A

PATIENT
  Age: 69 Year

DRUGS (1)
  1. AVANDAMET [Suspect]
     Route: 048
     Dates: start: 20030101, end: 20040101

REACTIONS (2)
  - MYOCARDIAL INFARCTION [None]
  - CARDIAC FAILURE CONGESTIVE [None]
